FAERS Safety Report 20962376 (Version 2)
Quarter: 2022Q4

REPORT INFORMATION
  Report Type: Spontaneous
  Country: US (occurrence: US)
  Receive Date: 20220615
  Receipt Date: 20221122
  Transmission Date: 20230112
  Serious: Yes (Other)
  Sender: FDA-Public Use
  Company Number: US-BRISTOL-MYERS SQUIBB COMPANY-2022-052348

PATIENT
  Age: 72 Year
  Sex: Male
  Weight: 97.52 kg

DRUGS (1)
  1. POMALYST [Suspect]
     Active Substance: POMALIDOMIDE
     Indication: Plasma cell myeloma
     Dosage: FREQUENCY- 21 DAYS ON, 7 DAYS OFF
     Route: 048

REACTIONS (2)
  - Neuropathy peripheral [Unknown]
  - Fatigue [Unknown]
